FAERS Safety Report 7735387-5 (Version None)
Quarter: 2011Q3

REPORT INFORMATION
  Report Type: 
  Country: None (occurrence: None)
  Receive Date: 20110907
  Receipt Date: 20110902
  Transmission Date: 20111222
  Serious: Yes (Other)
  Sender: FDA-Public Use
  Company Number: GB-PFIZER INC-2011133194

PATIENT
  Age: 15 Month
  Sex: Male
  Weight: 10.4 kg

DRUGS (14)
  1. GENTAMICIN [Concomitant]
     Indication: ENDOCARDITIS
     Dosage: 25 MG, 3X/DAY
     Dates: start: 20110502
  2. PARACETAMOL [Concomitant]
     Indication: PYREXIA
  3. VANCOMYCIN HCL [Suspect]
     Indication: ENDOCARDITIS
     Dosage: 550 MG UNIT DOSE
     Route: 042
     Dates: start: 20110502, end: 20110526
  4. RIFAMPICIN [Interacting]
     Indication: ENDOCARDITIS
     Dosage: 68 MG UNIT DOSE
     Route: 048
     Dates: start: 20110502, end: 20110526
  5. SPIRONOLACTONE [Concomitant]
     Indication: DIABETES MELLITUS
     Dosage: 5 MG UNIT DOSE
     Route: 048
     Dates: start: 20110305, end: 20110528
  6. CEFUROXIME [Concomitant]
     Indication: POSTOPERATIVE CARE
     Dosage: 300 MG, 3X/DAY
     Dates: start: 20110415
  7. PARACETAMOL [Concomitant]
     Indication: PAIN
     Dosage: 180 MG, AS NEEDED
  8. CEFOTAXIME [Interacting]
     Indication: ENDOCARDITIS
     Dosage: 500 MG UNIT DOSE
     Route: 042
     Dates: start: 20110502, end: 20110526
  9. HEPARIN [Concomitant]
     Indication: POSTOPERATIVE CARE
     Dosage: UNK
     Dates: start: 20110415
  10. MILRINONE [Concomitant]
     Indication: POSTOPERATIVE CARE
     Dosage: UNK
     Dates: start: 20110415
  11. FUROSEMIDE [Interacting]
     Indication: CARDIAC DISORDER
     Dosage: 5 MG UNIT DOSE
     Route: 048
     Dates: start: 20100305, end: 20110528
  12. CODEINE PHOSPHATE [Concomitant]
     Indication: PAIN
     Dosage: 10 MG, AS NEEDED
  13. LACTULOSE [Concomitant]
     Indication: CONSTIPATION
     Dosage: 5 ML, 2X/DAY
     Dates: start: 20110418, end: 20110421
  14. ACETYLSALICYLIC ACID [Concomitant]
     Indication: ANTIPLATELET THERAPY
     Dosage: 45 MG UNIT DOSE
     Route: 048
     Dates: start: 20110415

REACTIONS (3)
  - DRUG INTERACTION [None]
  - PAPULE [None]
  - RASH ERYTHEMATOUS [None]
